FAERS Safety Report 4749750-8 (Version None)
Quarter: 2005Q3

REPORT INFORMATION
  Report Type: 
  Country: None (occurrence: None)
  Receive Date: 20050822
  Receipt Date: 20050616
  Transmission Date: 20060218
  Serious: Yes (Other)
  Sender: FDA-Public Use
  Company Number: 200515769GDDC

PATIENT
  Age: 30 Year
  Sex: Female

DRUGS (1)
  1. CLOMID [Suspect]
     Indication: OVULATION INDUCTION
     Dates: end: 20050401

REACTIONS (2)
  - DEAFNESS [None]
  - DEAFNESS UNILATERAL [None]
